FAERS Safety Report 7977884-3 (Version None)
Quarter: 2011Q4

REPORT INFORMATION
  Report Type: 
  Country: None (occurrence: None)
  Receive Date: 20111214
  Receipt Date: 20111205
  Transmission Date: 20120403
  Serious: Yes (Death)
  Sender: FDA-Public Use
  Company Number: IE-BRISTOL-MYERS SQUIBB COMPANY-16285728

PATIENT
  Age: 1 Day

DRUGS (3)
  1. RITONAVIR [Suspect]
     Route: 064
     Dates: start: 20101117
  2. TRUVADA [Suspect]
     Dosage: 1DF=1TAB
     Route: 064
     Dates: start: 20101117
  3. ATAZANAVIR [Suspect]
     Route: 064
     Dates: start: 20101117

REACTIONS (1)
  - STILLBIRTH [None]
